FAERS Safety Report 4505996-5 (Version None)
Quarter: 2004Q4

REPORT INFORMATION
  Report Type: 
  Country: None (occurrence: None)
  Receive Date: 20041025
  Receipt Date: 20031229
  Transmission Date: 20050328
  Serious: Yes (Other)
  Sender: FDA-Public Use
  Company Number: US-JNJFOC-20030906187

PATIENT
  Age: 75 Year
  Sex: Female
  Weight: 76.6579 kg

DRUGS (2)
  1. REMICADE [Suspect]
     Indication: COLITIS ULCERATIVE
     Dosage: 500 MG, 1 IN 18 WEEK, INTRAVENOUS
     Route: 042
     Dates: start: 20011201
  2. LOMOTIL (UNSPECIFIED) DIPHENOXYLATE W/ATROPINE [Concomitant]

REACTIONS (1)
  - BREAST CANCER [None]
